FAERS Safety Report 18817745 (Version 1)
Quarter: 2021Q1

REPORT INFORMATION
  Report Type: Spontaneous
  Country: US (occurrence: US)
  Receive Date: 20210201
  Receipt Date: 20210201
  Transmission Date: 20210419
  Serious: No
  Sender: FDA-Public Use
  Company Number: US-ASTRAZENECA-2021A013838

PATIENT
  Sex: Male
  Weight: 98 kg

DRUGS (1)
  1. BYDUREON BCISE [Suspect]
     Active Substance: EXENATIDE
     Indication: GLUCOSE TOLERANCE IMPAIRED
     Route: 065
     Dates: start: 2020

REACTIONS (7)
  - Appetite disorder [Unknown]
  - Weight decreased [Unknown]
  - Device leakage [Unknown]
  - Injection site injury [Unknown]
  - Bowel movement irregularity [Unknown]
  - Injection site mass [Unknown]
  - Off label use [Unknown]
